FAERS Safety Report 22649216 (Version 1)
Quarter: 2023Q2

REPORT INFORMATION
  Report Type: Spontaneous
  Country: IT (occurrence: IT)
  Receive Date: 20230628
  Receipt Date: 20230628
  Transmission Date: 20230721
  Serious: Yes (Hospitalization)
  Sender: FDA-Public Use
  Company Number: None

PATIENT
  Age: 36 Year
  Sex: Female

DRUGS (1)
  1. TOCILIZUMAB [Suspect]
     Active Substance: TOCILIZUMAB
     Indication: Scleroderma
     Route: 065
     Dates: start: 20230513, end: 20230613

REACTIONS (5)
  - Constipation [Recovered/Resolved]
  - Hypertension [Unknown]
  - Rash erythematous [Unknown]
  - Peripheral swelling [Unknown]
  - Tachycardia [Unknown]

NARRATIVE: CASE EVENT DATE: 20230612
